FAERS Safety Report 25843455 (Version 2)
Quarter: 2025Q4

REPORT INFORMATION
  Report Type: Spontaneous
  Country: US (occurrence: US)
  Receive Date: 20250924
  Receipt Date: 20251003
  Transmission Date: 20260119
  Serious: No
  Sender: SANOFI AVENTIS
  Company Number: US-SA-2025SA285680

PATIENT
  Age: 66 Year
  Sex: Female

DRUGS (5)
  1. ELITEK [Suspect]
     Active Substance: RASBURICASE
     Indication: Influenza
     Dosage: 12 MG, 1X
     Route: 042
  2. ELITEK [Suspect]
     Active Substance: RASBURICASE
     Indication: Acute respiratory failure
     Dosage: UNK UNK, 1X (1.5 ONCE)
     Route: 042
  3. ELITEK [Suspect]
     Active Substance: RASBURICASE
     Indication: Acute kidney injury
  4. ELITEK [Suspect]
     Active Substance: RASBURICASE
     Indication: Lymphadenopathy
  5. ELITEK [Suspect]
     Active Substance: RASBURICASE
     Indication: Adrenal disorder

REACTIONS (1)
  - Off label use [Unknown]
